FAERS Safety Report 12366543 (Version 4)
Quarter: 2016Q3

REPORT INFORMATION
  Report Type: Report from Study
  Country: US (occurrence: US)
  Receive Date: 20160513
  Receipt Date: 20160801
  Transmission Date: 20161109
  Serious: Yes (Other)
  Sender: FDA-Public Use
  Company Number: US-TARO-2016TAR00416

PATIENT
  Age: 22 Year
  Sex: Female
  Weight: 78.91 kg

DRUGS (1)
  1. CLINDAMYCIN AND BENZOYL PEROXIDE GEL [Suspect]
     Active Substance: BENZOYL PEROXIDE\CLINDAMYCIN
     Indication: ACNE
     Dosage: 1 PEA SIZE, 2X/DAY
     Route: 061
     Dates: start: 20160224, end: 20160503

REACTIONS (1)
  - Blighted ovum [Not Recovered/Not Resolved]

NARRATIVE: CASE EVENT DATE: 20160502
